FAERS Safety Report 9171552 (Version 3)
Quarter: 2013Q2

REPORT INFORMATION
  Report Type: Report from Study
  Country: US (occurrence: US)
  Receive Date: 20130319
  Receipt Date: 20130410
  Transmission Date: 20140414
  Serious: Yes (Life-Threatening, Hospitalization, Other)
  Sender: FDA-Public Use
  Company Number: US-ROCHE-1198021

PATIENT
  Age: 56 Year
  Sex: Female
  Weight: 80.7 kg

DRUGS (29)
  1. BEVACIZUMAB [Suspect]
     Indication: OVARIAN CANCER
     Route: 042
     Dates: start: 20130206, end: 20130206
  2. PACLITAXEL [Suspect]
     Indication: OVARIAN CANCER
     Route: 065
     Dates: start: 20130116
  3. PACLITAXEL [Suspect]
     Dosage: 3RD CYCLE
     Route: 065
     Dates: start: 20130227
  4. CARBOPLATIN [Suspect]
     Indication: OVARIAN CANCER
     Route: 065
     Dates: start: 20130116
  5. CARBOPLATIN [Suspect]
     Dosage: CYCLE 3
     Route: 065
     Dates: start: 20130227
  6. LISINOPRIL [Concomitant]
     Indication: BLOOD PRESSURE
     Route: 048
  7. LISINOPRIL [Concomitant]
     Route: 065
  8. TRAMADOL [Concomitant]
     Indication: PAIN
     Route: 048
  9. METFORMIN [Concomitant]
     Indication: DIABETES MELLITUS
     Dosage: 30 MINUTES PRIOR TO THE MEAL
     Route: 048
  10. METFORMIN [Concomitant]
     Dosage: 30 MINUTES PRIOR TO THE MEAL
     Route: 048
  11. METFORMIN [Concomitant]
     Route: 065
  12. ZOFRAN [Concomitant]
     Dosage: 1 MONTH
     Route: 048
  13. PROTONIX [Concomitant]
     Route: 048
  14. MAGNESIUM OXIDE [Concomitant]
     Route: 048
  15. EMLA [Concomitant]
     Dosage: 2.5-2.5%
     Route: 061
  16. DOCUSATE [Concomitant]
     Indication: CONSTIPATION
     Route: 065
  17. COMPAZINE [Concomitant]
     Route: 048
  18. ASPIRIN [Concomitant]
     Route: 065
  19. COLACE [Concomitant]
     Route: 065
  20. ENOXAPARIN [Concomitant]
     Route: 065
  21. SPIRONOLACTONE [Concomitant]
     Route: 065
  22. CEFEPIME [Concomitant]
  23. CIPRO [Concomitant]
  24. PROPOFOL [Concomitant]
  25. VANCOMYCIN [Concomitant]
  26. FUROSEMIDE [Concomitant]
  27. HEPARIN [Concomitant]
  28. AZITHROMYCIN [Concomitant]
  29. LEVAQUIN [Concomitant]

REACTIONS (4)
  - Respiratory distress [Recovered/Resolved]
  - Hypertension [Recovered/Resolved]
  - Acute pulmonary oedema [Recovered/Resolved]
  - Stress cardiomyopathy [Recovering/Resolving]
